FAERS Safety Report 7908482-5 (Version None)
Quarter: 2011Q4

REPORT INFORMATION
  Report Type: 
  Country: None (occurrence: None)
  Receive Date: 20111111
  Receipt Date: 20111104
  Transmission Date: 20120403
  Serious: Yes (Other)
  Sender: FDA-Public Use
  Company Number: AU-JNJFOC-20111102903

PATIENT
  Age: 62 Year
  Sex: Female
  Weight: 60 kg

DRUGS (6)
  1. TOPAMAX [Suspect]
     Indication: MIGRAINE
     Route: 048
     Dates: start: 20090202
  2. LUMIGAN [Concomitant]
     Route: 065
  3. VENLAFAXINE HCL [Suspect]
     Indication: PRODUCT USED FOR UNKNOWN INDICATION
     Route: 048
     Dates: start: 20080210, end: 20090401
  4. LATANOPROST [Suspect]
     Indication: GLAUCOMA
     Route: 065
     Dates: start: 20090217, end: 20090313
  5. NEXIUM [Concomitant]
     Route: 065
  6. SUMATRIPTAN SUCCINATE [Concomitant]
     Route: 065

REACTIONS (1)
  - ORAL MUCOSAL EXFOLIATION [None]
